FAERS Safety Report 4735328-9 (Version None)
Quarter: 2005Q3

REPORT INFORMATION
  Report Type: 
  Country: None (occurrence: None)
  Receive Date: 20050803
  Receipt Date: 20050714
  Transmission Date: 20060218
  Serious: Yes (Hospitalization, Other)
  Sender: FDA-Public Use
  Company Number: US_0505116692

PATIENT
  Age: 60 Year
  Sex: Female

DRUGS (2)
  1. HUMULIN U [Suspect]
     Indication: DIABETES MELLITUS NON-INSULIN-DEPENDENT
  2. HUMALOG [Suspect]
     Indication: DIABETES MELLITUS NON-INSULIN-DEPENDENT

REACTIONS (10)
  - BLOOD CHLORIDE DECREASED [None]
  - BLOOD CREATINE INCREASED [None]
  - BLOOD UREA INCREASED [None]
  - CARBON DIOXIDE INCREASED [None]
  - CONFUSIONAL STATE [None]
  - DIABETIC KETOACIDOSIS [None]
  - DIZZINESS [None]
  - MEDICATION ERROR [None]
  - PHARMACEUTICAL PRODUCT COMPLAINT [None]
  - WRONG DRUG ADMINISTERED [None]
